FAERS Safety Report 15934661 (Version 1)
Quarter: 2019Q1

REPORT INFORMATION
  Report Type: Spontaneous
  Country: DE (occurrence: DE)
  Receive Date: 20190207
  Receipt Date: 20190207
  Transmission Date: 20190417
  Serious: Yes (Other)
  Sender: FDA-Public Use
  Company Number: PHHY2019DE024570

PATIENT

DRUGS (3)
  1. HUMIRA [Concomitant]
     Active Substance: ADALIMUMAB
     Indication: PRODUCT USED FOR UNKNOWN INDICATION
     Route: 065
  2. METHOTREXATE. [Suspect]
     Active Substance: METHOTREXATE
     Indication: PRODUCT USED FOR UNKNOWN INDICATION
     Dosage: UP TO 22.5 WEEKLY
     Route: 065
     Dates: start: 2011, end: 2013
  3. METHOTREXATE. [Suspect]
     Active Substance: METHOTREXATE
     Dosage: 10 MG, WEEKLY
     Route: 065

REACTIONS (10)
  - Arthritis [Unknown]
  - Sjogren^s syndrome [Unknown]
  - Stomatitis [Unknown]
  - Pleurisy [Unknown]
  - Parotid gland enlargement [Unknown]
  - Lymphadenopathy [Unknown]
  - Arthralgia [Unknown]
  - Tenosynovitis [Unknown]
  - Oral pain [Unknown]
  - Temporomandibular joint syndrome [Unknown]

NARRATIVE: CASE EVENT DATE: 2011
